FAERS Safety Report 25598496 (Version 2)
Quarter: 2025Q3

REPORT INFORMATION
  Report Type: Spontaneous
  Country: EU (occurrence: EU)
  Receive Date: 20250723
  Receipt Date: 20250801
  Transmission Date: 20251020
  Serious: Yes (Other)
  Sender: ORGANON
  Company Number: EU-SANDOZ-SDZ2025DE039352

PATIENT
  Age: 62 Year
  Sex: Male

DRUGS (1)
  1. MOMETASONE FUROATE [Suspect]
     Active Substance: MOMETASONE FUROATE
     Indication: Chronic sinusitis
     Dosage: USES IT ONCE A WEEK (I TOOK IT FOR 1.5 WEEK)
     Route: 065
     Dates: end: 20250422

REACTIONS (5)
  - Eye disorder [Unknown]
  - Intraocular pressure test abnormal [Unknown]
  - Periorbital swelling [Not Recovered/Not Resolved]
  - Drug ineffective [Unknown]
  - Inappropriate schedule of product administration [Unknown]

NARRATIVE: CASE EVENT DATE: 20250602
